FAERS Safety Report 11639942 (Version 1)
Quarter: 2015Q4

REPORT INFORMATION
  Report Type: Spontaneous
  Country: US (occurrence: US)
  Receive Date: 20151019
  Receipt Date: 20151019
  Transmission Date: 20160304
  Serious: Yes (Hospitalization)
  Sender: FDA-Public Use
  Company Number: US-CIPLA LTD.-2015US07960

PATIENT

DRUGS (16)
  1. EPINEPHRINE. [Suspect]
     Active Substance: EPINEPHRINE
     Dosage: 1 MG, UNK
     Route: 065
  2. SODIUM BICARBONATE. [Suspect]
     Active Substance: SODIUM BICARBONATE
     Dosage: 50 MEQ, UNK, BOLUS
     Route: 042
  3. CALCIUM CHLORIDE. [Suspect]
     Active Substance: CALCIUM CHLORIDE
     Dosage: 1 G, UNK
     Route: 065
  4. AMIODARONE [Suspect]
     Active Substance: AMIODARONE
     Dosage: 300 MG, UNK
     Route: 065
  5. BUPROPION. [Suspect]
     Active Substance: BUPROPION
     Dosage: 150 MG, UNK
     Route: 048
  6. MIXED SALTS OF AMPHETAMINE [Suspect]
     Active Substance: AMPHETAMINE ASPARTATE\AMPHETAMINE SULFATE\DEXTROAMPHETAMINE SACCHARATE\DEXTROAMPHETAMINE SULFATE
     Route: 065
  7. EPINEPHRINE. [Suspect]
     Active Substance: EPINEPHRINE
     Dosage: UNK
  8. MAGNESIUM [Suspect]
     Active Substance: MAGNESIUM
     Dosage: 1 G, UNK
     Route: 065
  9. LAMOTRIGINE. [Suspect]
     Active Substance: LAMOTRIGINE
     Dosage: 4G CUMULATIVE DOSE
  10. SODIUM BICARBONATE. [Suspect]
     Active Substance: SODIUM BICARBONATE
     Dosage: 50 MEQ, UNK, BOLUS
     Route: 042
  11. SODIUM BICARBONATE. [Suspect]
     Active Substance: SODIUM BICARBONATE
     Dosage: 50 MEQ, UNK, BOLUS
     Route: 042
  12. EPINEPHRINE. [Suspect]
     Active Substance: EPINEPHRINE
     Dosage: 6 1-MG DOSES
     Route: 065
  13. LAMOTRIGINE. [Suspect]
     Active Substance: LAMOTRIGINE
     Dosage: 100 MG, UNK
     Route: 048
  14. EPINEPHRINE. [Suspect]
     Active Substance: EPINEPHRINE
     Dosage: 12 1-MG BOLUSES
     Route: 065
  15. NOREPINEPHRINE [Suspect]
     Active Substance: NOREPINEPHRINE\NOREPINEPHRINE BITARTRATE
  16. FAT EMULSION NOS [Suspect]
     Active Substance: EGG PHOSPHOLIPIDS\SAFFLOWER OIL\SOYBEAN OIL
     Dosage: 100-ML BOLUS OF 20% LIPID EMULSION
     Route: 042

REACTIONS (18)
  - Circulatory collapse [Recovered/Resolved]
  - Acute lung injury [Recovered/Resolved]
  - Tremor [Unknown]
  - Sinus tachycardia [Recovered/Resolved]
  - Generalised tonic-clonic seizure [Recovered/Resolved]
  - Pneumonia [Recovered/Resolved]
  - Ventricular fibrillation [Recovered/Resolved]
  - Pineal gland cyst [None]
  - Ventricular tachycardia [Recovered/Resolved]
  - Pulmonary oedema [Recovered/Resolved]
  - Pleural effusion [Recovered/Resolved]
  - Memory impairment [Unknown]
  - Coordination abnormal [Unknown]
  - Intentional overdose [Recovered/Resolved]
  - Cerebral disorder [Recovered/Resolved]
  - Brain injury [None]
  - Lung consolidation [Recovered/Resolved]
  - Fine motor skill dysfunction [None]
